FAERS Safety Report 17036296 (Version 1)
Quarter: 2019Q4

REPORT INFORMATION
  Report Type: Spontaneous
  Country: US (occurrence: US)
  Receive Date: 20191015
  Receipt Date: 20191015
  Transmission Date: 20200122
  Serious: Yes (Hospitalization)
  Sender: FDA-Public Use
  Company Number: None

PATIENT
  Age: 15 Year
  Sex: Male

DRUGS (3)
  1. PULMOZYME [Suspect]
     Active Substance: DORNASE ALFA
     Indication: CYSTIC FIBROSIS
     Dosage: AS DIRECTED
     Route: 055
     Dates: start: 20150829
  2. AQUADEKS [Concomitant]
     Active Substance: MINERALS\VITAMINS
  3. LINEZOLD [Concomitant]
     Active Substance: LINEZOLID

REACTIONS (3)
  - Pulmonary function test decreased [None]
  - Asthma [None]
  - Weight decreased [None]

NARRATIVE: CASE EVENT DATE: 201909
